FAERS Safety Report 5088137-8 (Version None)
Quarter: 2006Q3

REPORT INFORMATION
  Report Type: 
  Country: None (occurrence: None)
  Receive Date: 20060821
  Receipt Date: 20060807
  Transmission Date: 20061208
  Serious: Yes (Hospitalization, Other)
  Sender: FDA-Public Use
  Company Number: HQWYE406009APR04

PATIENT
  Age: 60 Year
  Sex: Female
  Weight: 65.6 kg

DRUGS (2)
  1. MYLOTARG [Suspect]
     Indication: ACUTE MYELOID LEUKAEMIA
     Dosage: 10.1 MG, INTRAVENOUS
     Dates: start: 20040331, end: 20040331
  2. MYLOTARG [Suspect]
     Indication: ACUTE MYELOID LEUKAEMIA
     Dosage: 10.1 MG, INTRAVENOUS
     Dates: start: 20040415, end: 20040415

REACTIONS (5)
  - CHEST PAIN [None]
  - PANCYTOPENIA [None]
  - PLEURITIC PAIN [None]
  - PNEUMONIA [None]
  - PYREXIA [None]
